FAERS Safety Report 24710653 (Version 1)
Quarter: 2024Q4

REPORT INFORMATION
  Report Type: Spontaneous
  Country: ES (occurrence: ES)
  Receive Date: 20241209
  Receipt Date: 20241209
  Transmission Date: 20250114
  Serious: Yes (Hospitalization, Other)
  Sender: HIKMA
  Company Number: ES-MLMSERVICE-20241119-PI262372-00101-1

PATIENT

DRUGS (1)
  1. CARBOPLATIN [Suspect]
     Active Substance: CARBOPLATIN
     Indication: Seminoma
     Dosage: 1000?MG (555.56?MG/M2 OR AUC 7), RECEIVED ONE COURSE
     Route: 065
     Dates: start: 202308, end: 202308

REACTIONS (4)
  - Haematuria [Recovered/Resolved]
  - Acute kidney injury [Recovered/Resolved]
  - Ureteric obstruction [Recovered/Resolved]
  - Thrombosis [Recovered/Resolved]

NARRATIVE: CASE EVENT DATE: 20230801
